FAERS Safety Report 9609291 (Version 1)
Quarter: 2013Q4

REPORT INFORMATION
  Report Type: Spontaneous
  Country: FR (occurrence: FR)
  Receive Date: 20131009
  Receipt Date: 20131009
  Transmission Date: 20140711
  Serious: Yes (Congenital Anomaly)
  Sender: FDA-Public Use
  Company Number: FR-GALDERMA-FR13003020

PATIENT
  Sex: 0

DRUGS (1)
  1. EPIDUO [Suspect]
     Dosage: 0.1%-2.5%
     Dates: end: 201307

REACTIONS (6)
  - Foetal malformation [Not Recovered/Not Resolved]
  - Brain malformation [Not Recovered/Not Resolved]
  - Congenital central nervous system anomaly [Not Recovered/Not Resolved]
  - Congenital foot malformation [Not Recovered/Not Resolved]
  - Malformation venous [Not Recovered/Not Resolved]
  - Exposure during pregnancy [Not Recovered/Not Resolved]
